FAERS Safety Report 15167338 (Version 2)
Quarter: 2018Q3

REPORT INFORMATION
  Report Type: Spontaneous
  Country: AU (occurrence: AU)
  Receive Date: 20180719
  Receipt Date: 20180724
  Transmission Date: 20181010
  Serious: Yes (Death, Hospitalization)
  Sender: FDA-Public Use
  Company Number: AU-CELGENEUS-AUS-20180703901

PATIENT
  Age: 75 Year
  Sex: Female

DRUGS (1)
  1. POMALIDOMIDE [Suspect]
     Active Substance: POMALIDOMIDE
     Indication: PLASMA CELL MYELOMA
     Route: 048
     Dates: start: 201801, end: 201802

REACTIONS (4)
  - Plasma cell myeloma [Fatal]
  - Disease complication [Fatal]
  - Cytopenia [Unknown]
  - Infection [Unknown]

NARRATIVE: CASE EVENT DATE: 201804
